FAERS Safety Report 25946326 (Version 1)
Quarter: 2025Q4

REPORT INFORMATION
  Report Type: Spontaneous
  Country: GB (occurrence: None)
  Receive Date: 20251022
  Receipt Date: 20251022
  Transmission Date: 20260118
  Serious: Yes (Other)
  Sender: ENDO
  Company Number: GB-ENDO USA, INC.-2025-002047

PATIENT
  Sex: Male

DRUGS (4)
  1. AVEED [Suspect]
     Active Substance: TESTOSTERONE UNDECANOATE
     Indication: Androgen deficiency
     Dosage: UNK UNKNOWN, UNKNOWN
     Route: 065
  2. TRAMADOL HYDROCHLORIDE [Suspect]
     Active Substance: TRAMADOL HYDROCHLORIDE
     Indication: Back pain
     Dosage: UNK UNKNOWN, UNKNOWN
     Route: 065
  3. TRAMADOL HYDROCHLORIDE [Suspect]
     Active Substance: TRAMADOL HYDROCHLORIDE
     Indication: Muscle injury
  4. UNSPECIFIED INGREDIENT [Suspect]
     Active Substance: UNSPECIFIED INGREDIENT
     Indication: Muscle injury
     Dosage: UNK UNKNOWN, UNKNOWN
     Route: 065

REACTIONS (8)
  - Drug interaction [Unknown]
  - Depressed mood [Unknown]
  - Suicidal ideation [Unknown]
  - Depression [Unknown]
  - Anxiety [Unknown]
  - Muscle injury [Unknown]
  - Nausea [Unknown]
  - Vomiting [Unknown]
